FAERS Safety Report 6293011-5 (Version None)
Quarter: 2009Q3

REPORT INFORMATION
  Report Type: 
  Country: None (occurrence: None)
  Receive Date: 20090731
  Receipt Date: 20090722
  Transmission Date: 20100115
  Serious: Yes (Disabling, Other)
  Sender: FDA-Public Use
  Company Number: CA-MERCK-0806CAN00127

PATIENT
  Age: 15 Year
  Sex: Male

DRUGS (3)
  1. SINGULAIR [Suspect]
     Route: 048
     Dates: start: 20030101, end: 20080401
  2. BUDESONIDE [Suspect]
     Route: 065
     Dates: start: 20030101, end: 20080401
  3. ALBUTEROL [Suspect]
     Route: 065

REACTIONS (3)
  - ACUTE PSYCHOSIS [None]
  - DRUG WITHDRAWAL SYNDROME [None]
  - PSYCHOTIC DISORDER [None]
